FAERS Safety Report 16030466 (Version 4)
Quarter: 2023Q1

REPORT INFORMATION
  Report Type: Spontaneous
  Country: JP (occurrence: JP)
  Receive Date: 20190304
  Receipt Date: 20230120
  Transmission Date: 20230417
  Serious: Yes (Hospitalization)
  Sender: FDA-Public Use
  Company Number: JP-JNJFOC-20190106597

PATIENT
  Age: 47 Year
  Sex: Female

DRUGS (13)
  1. REMICADE [Suspect]
     Active Substance: INFLIXIMAB
     Indication: Colitis ulcerative
     Route: 041
     Dates: start: 20181018, end: 20181101
  2. REMICADE [Suspect]
     Active Substance: INFLIXIMAB
     Route: 041
     Dates: start: 20181129
  3. PENTASA [Concomitant]
     Active Substance: MESALAMINE
     Route: 065
     Dates: start: 20180301
  4. PREDNISOLONE [Concomitant]
     Active Substance: PREDNISOLONE
     Route: 065
     Dates: start: 20180324
  5. PREDNISOLONE [Concomitant]
     Active Substance: PREDNISOLONE
     Route: 065
     Dates: start: 20180510
  6. PREDNISOLONE [Concomitant]
     Active Substance: PREDNISOLONE
     Route: 065
     Dates: start: 2018
  7. LIALDA [Concomitant]
     Active Substance: MESALAMINE
     Indication: Colitis ulcerative
     Route: 048
     Dates: start: 20180525, end: 20181225
  8. PREDNISOLONE SODIUM PHOSPHATE [Concomitant]
     Active Substance: PREDNISOLONE SODIUM PHOSPHATE
     Indication: Colitis ulcerative
     Route: 054
     Dates: start: 20180911
  9. SODIUM FERROUS CITRATE [Concomitant]
     Active Substance: SODIUM FERROUS CITRATE
     Indication: Anaemia
     Route: 048
     Dates: start: 20181129, end: 20181213
  10. NEXIUM [Concomitant]
     Active Substance: ESOMEPRAZOLE MAGNESIUM
     Indication: Gastritis
     Route: 048
  11. ASACOL [Concomitant]
     Active Substance: MESALAMINE
     Route: 048
  12. ASACOL [Concomitant]
     Active Substance: MESALAMINE
     Route: 048
     Dates: start: 20180222
  13. PROGRAF [Concomitant]
     Active Substance: TACROLIMUS
     Route: 065
     Dates: start: 201808

REACTIONS (1)
  - Disseminated tuberculosis [Recovering/Resolving]

NARRATIVE: CASE EVENT DATE: 20181218
